FAERS Safety Report 9798192 (Version 1)
Quarter: 2014Q1

REPORT INFORMATION
  Report Type: Spontaneous
  Country: US (occurrence: None)
  Receive Date: 20140102
  Receipt Date: 20140102
  Transmission Date: 20141002
  Serious: Yes (Hospitalization)
  Sender: FDA-Public Use
  Company Number: None

PATIENT
  Age: 66 None
  Sex: Male

DRUGS (1)
  1. WARFARIN [Suspect]
     Indication: DEEP VEIN THROMBOSIS
     Dosage: OTHER
     Route: 048
     Dates: start: 20130903

REACTIONS (13)
  - Gastric haemorrhage [None]
  - Melaena [None]
  - Dizziness [None]
  - Nausea [None]
  - Abdominal pain upper [None]
  - Anaemia [None]
  - Dizziness [None]
  - Hiatus hernia [None]
  - Gastritis erosive [None]
  - Duodenitis [None]
  - Duodenal ulcer [None]
  - Diverticulum intestinal [None]
  - Helicobacter test positive [None]
